APPROVED DRUG PRODUCT: LENALIDOMIDE
Active Ingredient: LENALIDOMIDE
Strength: 15MG
Dosage Form/Route: CAPSULE;ORAL
Application: A213405 | Product #004 | TE Code: AB
Applicant: TORRENT PHARMACEUTICALS LTD
Approved: Nov 4, 2025 | RLD: No | RS: No | Type: RX